FAERS Safety Report 24713298 (Version 1)
Quarter: 2024Q4

REPORT INFORMATION
  Report Type: Spontaneous
  Country: US (occurrence: US)
  Receive Date: 20241209
  Receipt Date: 20241209
  Transmission Date: 20250114
  Serious: No
  Sender: REGENERON
  Company Number: US-REGENERON PHARMACEUTICALS, INC.-2024-019518

PATIENT
  Sex: Female

DRUGS (2)
  1. EYLEA [Suspect]
     Active Substance: AFLIBERCEPT
     Indication: Diabetic retinopathy
     Dosage: 2 MG, Q4W (FORMULATION: UNKNOWN)
     Dates: start: 2023
  2. EYLEA [Suspect]
     Active Substance: AFLIBERCEPT
     Dosage: 2 MG, Q8W (FORMULATION: UNKNOWN)

REACTIONS (9)
  - Rhinorrhoea [Unknown]
  - Dizziness [Unknown]
  - Nausea [Unknown]
  - Migraine [Unknown]
  - Visual impairment [Unknown]
  - Vision blurred [Unknown]
  - Vitreous floaters [Not Recovered/Not Resolved]
  - Eye pain [Not Recovered/Not Resolved]
  - Lacrimation increased [Unknown]

NARRATIVE: CASE EVENT DATE: 20240101
